FAERS Safety Report 6070899-4 (Version None)
Quarter: 2009Q1

REPORT INFORMATION
  Report Type: 
  Country: None (occurrence: None)
  Receive Date: 20090209
  Receipt Date: 20090130
  Transmission Date: 20090719
  Serious: Yes (Death)
  Sender: FDA-Public Use
  Company Number: US-TYCO HEALTHCARE/MALLINCKRODT-T200900188

PATIENT
  Age: 21 Year
  Sex: Male

DRUGS (2)
  1. METHADOSE [Suspect]
     Route: 048
  2. ETHANOL [Suspect]
     Route: 048

REACTIONS (5)
  - ALCOHOL POISONING [None]
  - CARDIAC ARREST [None]
  - COMPLETED SUICIDE [None]
  - DRUG TOXICITY [None]
  - LETHARGY [None]
